FAERS Safety Report 7341353-4 (Version None)
Quarter: 2011Q1

REPORT INFORMATION
  Report Type: 
  Country: None (occurrence: None)
  Receive Date: 20110301
  Receipt Date: 20110211
  Transmission Date: 20110831
  Serious: Yes (Death)
  Sender: FDA-Public Use
  Company Number: ACO_21807_2011

PATIENT
  Age: 64 Year
  Sex: Female

DRUGS (12)
  1. AMPYRA [Suspect]
     Indication: MULTIPLE SCLEROSIS
     Dosage: 10 MG, Q 12 HRS, ORAL
     Route: 048
     Dates: start: 20100701, end: 20101030
  2. COPAXONE [Concomitant]
  3. HYZAAR [Concomitant]
  4. GABAPENTIN [Concomitant]
  5. CALCIUM + VIT D (CALCIUM, COLECALCIFEROL) [Concomitant]
  6. PAXIL [Concomitant]
  7. FISH OIL (FISH OIL) [Concomitant]
  8. CYMBALTA (DUOXETINE HYDROCHLORIDE) [Concomitant]
  9. FLAXSEED OIL (LINUM USITATISSIMUM SEED OIL) [Concomitant]
  10. MACROBID /00024401/ (NITROFURANTOIN) [Concomitant]
  11. MULTIVITAMIN /00831701/ (VITAMINS NOS) [Concomitant]
  12. PAROXETINE /00830802/ (PAROXETINE HYDROCHLORIDE) [Concomitant]

REACTIONS (1)
  - CARDIO-RESPIRATORY ARREST [None]
